FAERS Safety Report 4365052-6 (Version None)
Quarter: 2004Q2

REPORT INFORMATION
  Report Type: 
  Country: None (occurrence: None)
  Receive Date: 20040521
  Receipt Date: 20040430
  Transmission Date: 20050107
  Serious: Yes (Other)
  Sender: FDA-Public Use
  Company Number: 206634

PATIENT
  Age: 48 Year
  Sex: Female

DRUGS (7)
  1. HERCEPTIN [Suspect]
     Indication: DRUG USE FOR UNKNOWN INDICATION
     Dosage: 248 MG , INTRAVENOUS
     Route: 042
  2. TAXOTERE [Suspect]
     Dosage: 130 MG; QD, INTRAVENOUS
     Route: 042
  3. CARBOPLATIN [Suspect]
     Dosage: 610 MG,INTRAVENOUS
     Route: 042
  4. AMITRIPTYLINE HCL [Concomitant]
  5. DECADRON [Concomitant]
  6. PROCHLORPERAZINE [Concomitant]
  7. TYLENOL #3 (CANADA) (CODEINE PHOSPHATE, CAFFEINE, ACETAMINOPHEN) [Concomitant]

REACTIONS (5)
  - METASTASIS [None]
  - NEUTROPENIA [None]
  - PULMONARY EMBOLISM [None]
  - PYREXIA [None]
  - SINUS TACHYCARDIA [None]
